FAERS Safety Report 5494169-8 (Version None)
Quarter: 2007Q4

REPORT INFORMATION
  Report Type: 
  Country: None (occurrence: None)
  Receive Date: 20071023
  Receipt Date: 20071023
  Transmission Date: 20080405
  Serious: Yes (Other)
  Sender: FDA-Public Use
  Company Number: None

PATIENT
  Age: 25 Year
  Sex: Male
  Weight: 78.0187 kg

DRUGS (1)
  1. TESSALON PERELS   100MG [Suspect]
     Indication: COUGH
     Dosage: 100MG  TID  PO
     Route: 048
     Dates: start: 20070723, end: 20070723

REACTIONS (6)
  - ANXIETY [None]
  - BRONCHITIS [None]
  - CHEST DISCOMFORT [None]
  - COUGH [None]
  - HYPERVENTILATION [None]
  - RESPIRATORY ALKALOSIS [None]
